FAERS Safety Report 16259747 (Version 3)
Quarter: 2019Q4

REPORT INFORMATION
  Report Type: Spontaneous
  Country: US (occurrence: US)
  Receive Date: 20190501
  Receipt Date: 20191203
  Transmission Date: 20200122
  Serious: Yes (Other)
  Sender: FDA-Public Use
  Company Number: US-ASTRAZENECA-2019SE10666

PATIENT

DRUGS (43)
  1. NEXIUM [Suspect]
     Active Substance: ESOMEPRAZOLE MAGNESIUM
     Dosage: GENERIC
     Route: 048
     Dates: start: 20160426
  2. CYCLOBENZAPRINE. [Concomitant]
     Active Substance: CYCLOBENZAPRINE
  3. PREDNISONE. [Concomitant]
     Active Substance: PREDNISONE
  4. METFORMIN [Concomitant]
     Active Substance: METFORMIN HYDROCHLORIDE
  5. IBUPROFEN. [Concomitant]
     Active Substance: IBUPROFEN
  6. HUMALOG [Concomitant]
     Active Substance: INSULIN LISPRO
     Route: 065
     Dates: start: 20170825
  7. NEXIUM [Suspect]
     Active Substance: ESOMEPRAZOLE MAGNESIUM
     Route: 048
     Dates: start: 20120313
  8. GABAPENTIN. [Concomitant]
     Active Substance: GABAPENTIN
  9. LANTUS [Concomitant]
     Active Substance: INSULIN GLARGINE
  10. CLOPIDOGREL [Concomitant]
     Active Substance: CLOPIDOGREL BISULFATE
  11. METOPROLOL TARTRATE. [Concomitant]
     Active Substance: METOPROLOL TARTRATE
  12. PATANOL [Concomitant]
     Active Substance: OLOPATADINE HYDROCHLORIDE
  13. GABAPENTIN. [Concomitant]
     Active Substance: GABAPENTIN
  14. FLUTICASONE. [Concomitant]
     Active Substance: FLUTICASONE
  15. FAMOTIDINE. [Concomitant]
     Active Substance: FAMOTIDINE
  16. NOVOLOG [Concomitant]
     Active Substance: INSULIN ASPART
  17. SIMVASTATIN. [Concomitant]
     Active Substance: SIMVASTATIN
  18. CIPROFLOXACIN. [Concomitant]
     Active Substance: CIPROFLOXACIN
  19. BETAMETHASONE. [Concomitant]
     Active Substance: BETAMETHASONE
  20. DULOXETINE. [Concomitant]
     Active Substance: DULOXETINE
  21. FELODIPINE. [Concomitant]
     Active Substance: FELODIPINE
  22. SIMVASTATIN. [Concomitant]
     Active Substance: SIMVASTATIN
  23. MOMETASONE [Concomitant]
     Active Substance: MOMETASONE
  24. ELIQUIS [Concomitant]
     Active Substance: APIXABAN
  25. ASPIRIN. [Concomitant]
     Active Substance: ASPIRIN
  26. CLONIDINE. [Concomitant]
     Active Substance: CLONIDINE
  27. AMLODIPINE [Concomitant]
     Active Substance: AMLODIPINE BESYLATE
  28. VITAMIN D2 [Concomitant]
     Active Substance: ERGOCALCIFEROL
  29. POTASSIUM CHLORIDE. [Concomitant]
     Active Substance: POTASSIUM CHLORIDE
  30. FUROSEMIDE. [Concomitant]
     Active Substance: FUROSEMIDE
  31. PRILOSEC [Suspect]
     Active Substance: OMEPRAZOLE MAGNESIUM
     Route: 048
  32. AMOX-CLAV [Concomitant]
     Active Substance: AMOXICILLIN\CLAVULANATE POTASSIUM
  33. GLYBURIDE. [Concomitant]
     Active Substance: GLYBURIDE
  34. ISOSORBIDE MONONITRATE. [Concomitant]
     Active Substance: ISOSORBIDE MONONITRATE
  35. AMITRIPTYLINE [Concomitant]
     Active Substance: AMITRIPTYLINE
  36. WARFARIN [Concomitant]
     Active Substance: WARFARIN
  37. LEVEMIR [Concomitant]
     Active Substance: INSULIN DETEMIR
     Route: 065
     Dates: start: 20181010
  38. METOPROLOL. [Concomitant]
     Active Substance: METOPROLOL
  39. DOXAZOSIN [Concomitant]
     Active Substance: DOXAZOSIN MESYLATE
  40. KETOCONAZOLE. [Concomitant]
     Active Substance: KETOCONAZOLE
  41. LISINOPRIL. [Concomitant]
     Active Substance: LISINOPRIL
  42. BENZONATATE. [Concomitant]
     Active Substance: BENZONATATE
  43. SULFACETAMIDE. [Concomitant]
     Active Substance: SULFACETAMIDE

REACTIONS (4)
  - Renal injury [Unknown]
  - Chronic kidney disease [Unknown]
  - Renal failure [Unknown]
  - Rebound acid hypersecretion [Unknown]
